FAERS Safety Report 10109770 (Version 1)
Quarter: 2014Q2

REPORT INFORMATION
  Report Type: Report from Study
  Country: US (occurrence: US)
  Receive Date: 20140425
  Receipt Date: 20140425
  Transmission Date: 20141212
  Serious: Yes (Death)
  Sender: FDA-Public Use
  Company Number: US-ROCHE-1390173

PATIENT
  Age: 71 Year
  Sex: Male

DRUGS (20)
  1. RITUXIMAB [Suspect]
     Indication: ANTI-NEUTROPHIL CYTOPLASMIC ANTIBODY POSITIVE VASCULITIS
     Dosage: 1 DURING WEEK 1
     Route: 042
  2. RITUXIMAB [Suspect]
     Dosage: 1 WITHIN 3 WEEKS AFTER DOSE 1, 1 G IV 1 FOR EVERY 4 MONTHS AFTER DOSE 2 AND 2 YEARS THERE AFTER FOLL
     Route: 042
  3. CYCLOPHOSPHAMIDE [Concomitant]
     Dosage: FOR 1 WEEK
     Route: 048
  4. CYCLOPHOSPHAMIDE [Concomitant]
     Dosage: FOR 7 WEEK
     Route: 048
  5. PREDNISONE [Concomitant]
     Dosage: FOR 3 DAYS
     Route: 042
  6. PREDNISONE [Concomitant]
     Route: 048
  7. PREDNISONE [Concomitant]
     Dosage: FOR 1 WEEK
     Route: 048
  8. PREDNISONE [Concomitant]
     Dosage: FOR 1 WEEK
     Route: 048
  9. PREDNISONE [Concomitant]
     Dosage: FOR 1 WEEK
     Route: 048
  10. PREDNISONE [Concomitant]
     Dosage: FOR 1 WEEK
     Route: 048
  11. PREDNISONE [Concomitant]
     Dosage: FOR 1 MONTH
     Route: 048
  12. PREDNISONE [Concomitant]
     Dosage: FOR 1 MONTH
     Route: 048
  13. PREDNISONE [Concomitant]
     Dosage: FOR 1 MONTH
     Route: 048
  14. PREDNISONE [Concomitant]
     Dosage: FOR 1 MONTH
     Route: 048
  15. PREDNISONE [Concomitant]
     Dosage: FOR 1 MONTH
     Route: 048
  16. PREDNISONE [Concomitant]
     Dosage: FOR 1 MONTH
     Route: 048
  17. PREDNISONE [Concomitant]
     Dosage: EVERY OTHER DAY FOR 1 MONTH
     Route: 048
  18. AZATHIOPRINE [Concomitant]
  19. METHOTREXATE [Concomitant]
  20. MYCOPHENOLATE MOFETIL [Concomitant]
     Route: 065

REACTIONS (1)
  - Pulmonary fibrosis [Fatal]
